FAERS Safety Report 10503722 (Version 1)
Quarter: 2014Q4

REPORT INFORMATION
  Report Type: Spontaneous
  Country: FR (occurrence: FR)
  Receive Date: 20141008
  Receipt Date: 20141008
  Transmission Date: 20150528
  Serious: Yes (Death)
  Sender: FDA-Public Use
  Company Number: FR-BAYER-2014-143411

PATIENT
  Age: 75 Year
  Sex: Female

DRUGS (10)
  1. NASACORT [Concomitant]
     Active Substance: TRIAMCINOLONE ACETONIDE
  2. QVAR [Concomitant]
     Active Substance: BECLOMETHASONE DIPROPIONATE
  3. INIPOMP [Concomitant]
     Active Substance: PANTOPRAZOLE SODIUM
  4. DOXYCYCLINE. [Suspect]
     Active Substance: DOXYCYCLINE
     Indication: LUNG INFECTION
     Dosage: UNK
     Dates: start: 20131203, end: 20131208
  5. XYLOCAINE [Suspect]
     Active Substance: LIDOCAINE HYDROCHLORIDE
     Indication: LUNG DISORDER
     Dosage: 50 MG, BID
     Route: 055
     Dates: start: 20131205, end: 20131205
  6. PULMICORT TURBUHALER [Suspect]
     Active Substance: BUDESONIDE
     Indication: LUNG DISORDER
     Dosage: 2 MG, BID
     Dates: start: 20131205, end: 20131205
  7. PREDNISOLONE. [Suspect]
     Active Substance: PREDNISOLONE
     Indication: LUNG DISORDER
     Dosage: 20 UNK, UNK
     Dates: start: 20131202, end: 20131208
  8. BRONCHOKOD [Suspect]
     Active Substance: CARBOCYSTEINE
     Indication: LUNG DISORDER
     Dosage: UNK
     Dates: start: 20131203, end: 20131208
  9. IZILOX [Suspect]
     Active Substance: MOXIFLOXACIN HYDROCHLORIDE
     Indication: LUNG INFECTION
     Dosage: UNK
     Dates: start: 20131202, end: 20131203
  10. RULID [Concomitant]
     Active Substance: ROXITHROMYCIN

REACTIONS (1)
  - Death [Fatal]

NARRATIVE: CASE EVENT DATE: 20131208
